FAERS Safety Report 7747197-3 (Version None)
Quarter: 2011Q3

REPORT INFORMATION
  Report Type: 
  Country: None (occurrence: None)
  Receive Date: 20110913
  Receipt Date: 20110908
  Transmission Date: 20111222
  Serious: Yes (Other)
  Sender: FDA-Public Use
  Company Number: BR-PFIZER INC-2011210912

PATIENT
  Age: 46 Year
  Sex: Female
  Weight: 70 kg

DRUGS (6)
  1. VARENICLINE TARTRATE [Suspect]
     Dosage: 0.5 MG, 1X/DAY
     Route: 048
  2. LOSARTAN [Concomitant]
     Dosage: 50 MG, UNK
     Dates: start: 20100301
  3. ALENTHUS XR [Concomitant]
     Dosage: UNK
     Dates: start: 20110201
  4. VARENICLINE TARTRATE [Suspect]
     Indication: SMOKING CESSATION THERAPY
     Dosage: UNK
     Route: 048
     Dates: start: 20110905
  5. CLORANA [Concomitant]
     Dosage: 25 UNK,UNK
  6. CLONAZEPAM [Concomitant]
     Dosage: UNK
     Dates: start: 20100301

REACTIONS (1)
  - HEART RATE IRREGULAR [None]
